FAERS Safety Report 10511361 (Version 1)
Quarter: 2014Q4

REPORT INFORMATION
  Report Type: Spontaneous
  Country: GB (occurrence: None)
  Receive Date: 20141008
  Receipt Date: 20141008
  Transmission Date: 20150528
  Serious: Yes (Other)
  Sender: FDA-Public Use
  Company Number: DAV-AE-MTX-14-50

PATIENT

DRUGS (2)
  1. METHOTREXATE [Suspect]
     Active Substance: METHOTREXATE
     Indication: UVEITIS
     Dosage: 400 MICROGRAM IN 1 ML INVITREAL INJECTION
  2. METHOTREXATE [Suspect]
     Active Substance: METHOTREXATE
     Indication: CYSTOID MACULAR OEDEMA
     Dosage: 400 MICROGRAM IN 1 ML INVITREAL INJECTION

REACTIONS (1)
  - Ocular hypertension [None]
